FAERS Safety Report 9380234 (Version 2)
Quarter: 2013Q3

REPORT INFORMATION
  Report Type: Spontaneous
  Country: IT (occurrence: IT)
  Receive Date: 20130702
  Receipt Date: 20130705
  Transmission Date: 20140515
  Serious: Yes (Hospitalization)
  Sender: FDA-Public Use
  Company Number: IT-BAYER-2013-081132

PATIENT
  Age: 25 Year
  Sex: Female
  Weight: 58.05 kg

DRUGS (1)
  1. YAZ [Suspect]
     Indication: ORAL CONTRACEPTION
     Dosage: DAILY DOSE 1 DF
     Route: 048
     Dates: start: 20120210, end: 20130514

REACTIONS (3)
  - Pulmonary embolism [Recovered/Resolved]
  - Flank pain [Recovered/Resolved]
  - Musculoskeletal pain [Recovered/Resolved]
